FAERS Safety Report 18249493 (Version 8)
Quarter: 2024Q1

REPORT INFORMATION
  Report Type: Spontaneous
  Country: US (occurrence: US)
  Receive Date: 20200909
  Receipt Date: 20240108
  Transmission Date: 20240410
  Serious: Yes (Disabling, Other)
  Sender: FDA-Public Use
  Company Number: US-PFIZER INC-2020345470

PATIENT
  Age: 67 Year
  Sex: Female

DRUGS (5)
  1. EUCRISA [Suspect]
     Active Substance: CRISABOROLE
     Indication: Blister
     Dosage: APPLY TO ARMS, HANDS, FACE, TRUNK TWICE A DAY
     Route: 061
  2. EUCRISA [Suspect]
     Active Substance: CRISABOROLE
     Indication: Superficial inflammatory dermatosis
  3. EUCRISA [Suspect]
     Active Substance: CRISABOROLE
     Indication: Asteatosis
  4. EUCRISA [Suspect]
     Active Substance: CRISABOROLE
     Indication: Eczema
  5. EUCRISA [Suspect]
     Active Substance: CRISABOROLE
     Indication: Pruritus

REACTIONS (12)
  - Gait disturbance [Unknown]
  - Knee operation [Unknown]
  - Drug ineffective for unapproved indication [Unknown]
  - Off label use [Unknown]
  - Condition aggravated [Unknown]
  - Rash [Not Recovered/Not Resolved]
  - Rash pruritic [Unknown]
  - Exfoliative rash [Unknown]
  - Pain [Not Recovered/Not Resolved]
  - Fall [Unknown]
  - Laryngitis [Unknown]
  - Pharyngitis streptococcal [Unknown]
